FAERS Safety Report 5918559-1 (Version None)
Quarter: 2008Q4

REPORT INFORMATION
  Report Type: 
  Country: None (occurrence: None)
  Receive Date: 20081014
  Receipt Date: 20081014
  Transmission Date: 20090506
  Serious: Yes (Hospitalization)
  Sender: FDA-Public Use
  Company Number: None

PATIENT
  Sex: Female
  Weight: 83.1 kg

DRUGS (28)
  1. LAPATINIB 250 MG GLAXOSMITHKLINE [Suspect]
     Indication: BREAST CANCER
     Dosage: 1000MG PO QD
     Route: 048
     Dates: start: 20080801
  2. HERCEPTIN [Suspect]
     Indication: BREAST CANCER
     Dosage: 2 MG/KG IV Q WEEKLY
     Route: 042
     Dates: start: 20080801
  3. ADVICOR [Concomitant]
  4. EFFEXOR [Concomitant]
  5. MULTI-VITAMINS [Concomitant]
  6. ASCORBIC ACID [Concomitant]
  7. VITAMIN D [Concomitant]
  8. FEMARA [Concomitant]
  9. CLINDAMYCIN PHOSPHATE [Concomitant]
  10. NEXIUM [Concomitant]
  11. ANUSOL [Concomitant]
  12. REPLENS GEL [Concomitant]
  13. CLARITIN [Concomitant]
  14. LOVAZA [Concomitant]
  15. VITAMIN B COMPLEX CAPS [Concomitant]
  16. BIOTIN [Concomitant]
  17. SUDAFED SINUS [Concomitant]
  18. GAS-X [Concomitant]
  19. HYDROCORTISONE 10MG TAB [Concomitant]
  20. XANAX [Concomitant]
  21. CORTANE-B [Concomitant]
  22. TYKERB [Concomitant]
  23. HERCEPTIN [Concomitant]
  24. COMBIVENT [Concomitant]
  25. SINGULAIR [Concomitant]
  26. CHANTIX [Concomitant]
  27. FLOVENT HFA [Concomitant]
  28. ZOLADEX [Concomitant]

REACTIONS (3)
  - ASTHMA [None]
  - CONDITION AGGRAVATED [None]
  - NO THERAPEUTIC RESPONSE [None]
